FAERS Safety Report 10758924 (Version 3)
Quarter: 2015Q2

REPORT INFORMATION
  Report Type: Spontaneous
  Country: US (occurrence: US)
  Receive Date: 20150203
  Receipt Date: 20150428
  Transmission Date: 20150821
  Serious: Yes (Death, Hospitalization, Disabling, Other)
  Sender: FDA-Public Use
  Company Number: US-MERCK-1502USA000554

PATIENT
  Sex: Female
  Weight: 78.91 kg

DRUGS (2)
  1. BYETTA [Suspect]
     Active Substance: EXENATIDE
     Indication: TYPE 2 DIABETES MELLITUS
     Dosage: 5 MCG 2X/DAY
     Dates: start: 200807
  2. JANUVIA [Suspect]
     Active Substance: SITAGLIPTIN PHOSPHATE
     Indication: TYPE 2 DIABETES MELLITUS
     Dosage: 100 MG, UNK
     Route: 048
     Dates: start: 20071210, end: 20080718

REACTIONS (30)
  - Dizziness [Unknown]
  - Tachypnoea [Unknown]
  - Renal failure [Unknown]
  - Hypoglycaemia [Unknown]
  - Depression [Unknown]
  - Hyperlipidaemia [Unknown]
  - Partial lung resection [Unknown]
  - Cholangitis infective [Unknown]
  - Septic shock [Unknown]
  - Hypertension [Unknown]
  - Paraesthesia [Unknown]
  - Pancreatic carcinoma metastatic [Fatal]
  - Jaundice cholestatic [Unknown]
  - Bile duct stent insertion [Unknown]
  - Blood bilirubin increased [Unknown]
  - Jaundice [Unknown]
  - Furuncle [Unknown]
  - Muscle spasms [Unknown]
  - Respiratory failure [Fatal]
  - Biliary sphincterotomy [Unknown]
  - Choledocholithotomy [Unknown]
  - Gastrooesophageal reflux disease [Unknown]
  - Pancreatic stent placement [Unknown]
  - Increased tendency to bruise [Unknown]
  - Gallbladder disorder [Unknown]
  - Metastases to lung [Fatal]
  - Musculoskeletal chest pain [Unknown]
  - Acidosis [Unknown]
  - Cataract [Unknown]
  - Pancreatic abscess [Unknown]

NARRATIVE: CASE EVENT DATE: 200807
